FAERS Safety Report 4742916-2 (Version None)
Quarter: 2005Q3

REPORT INFORMATION
  Report Type: 
  Country: None (occurrence: None)
  Receive Date: 20050810
  Receipt Date: 20050810
  Transmission Date: 20060218
  Serious: No
  Sender: FDA-Public Use
  Company Number: None

PATIENT
  Sex: Female
  Weight: 93.2 kg

DRUGS (2)
  1. CETUXIMAB 250 MG [Suspect]
     Indication: RECTAL CANCER
     Dosage: 250 MG    WEEKLY X 9   INTRAVENOU
     Route: 042
     Dates: start: 20050711, end: 20050808
  2. XELODA [Suspect]
     Indication: RECTAL CANCER
     Dosage: 700 MG/M^2   M-F W/XRT    ORAL
     Route: 048
     Dates: start: 20050711, end: 20050808

REACTIONS (2)
  - DEHYDRATION [None]
  - DIARRHOEA [None]
